FAERS Safety Report 18109486 (Version 1)
Quarter: 2020Q3

REPORT INFORMATION
  Report Type: Spontaneous
  Country: CA (occurrence: CA)
  Receive Date: 20200804
  Receipt Date: 20200804
  Transmission Date: 20201103
  Serious: Yes (Other)
  Sender: FDA-Public Use
  Company Number: CA-SA-2020SA191970

PATIENT

DRUGS (12)
  1. OXALIPLATIN. [Suspect]
     Active Substance: OXALIPLATIN
     Indication: ADENOCARCINOMA PANCREAS
     Dosage: 85 MG/M2(CYCLE IS REPEATED EVERY 2 WEEKS)
     Route: 042
  2. IRINOTECAN [Suspect]
     Active Substance: IRINOTECAN
     Indication: ADENOCARCINOMA PANCREAS
     Dosage: 180 MG/M2(OVER 90 MIN,CYCLE IS REPEATED EVERY 2 WEEKS)
     Route: 042
  3. IRINOTECAN [Suspect]
     Active Substance: IRINOTECAN
     Indication: PANCREATIC CARCINOMA METASTATIC
     Dosage: 180 MG/M2(OVER 90 MIN,CYCLE IS REPEATED EVERY 2 WEEKS)
     Route: 042
  4. FLUOROURACIL. [Concomitant]
     Active Substance: FLUOROURACIL
     Indication: PANCREATIC CARCINOMA METASTATIC
     Dosage: 2400 MG/M2(46?H CONTINUOUS IV INFUSION)
     Route: 040
  5. FLUOROURACIL. [Concomitant]
     Active Substance: FLUOROURACIL
     Indication: ADENOCARCINOMA PANCREAS
     Dosage: 400 MG/M2(CYCLE IS REPEATED EVERY 2 WEEKS)
     Route: 040
  6. IRINOTECAN [Suspect]
     Active Substance: IRINOTECAN
     Dosage: 180 MG/M2(OVER 90 MIN,CYCLE IS REPEATED EVERY 2 WEEKS)
     Route: 042
  7. IRINOTECAN [Suspect]
     Active Substance: IRINOTECAN
     Dosage: 180 MG/M2(OVER 90 MIN,CYCLE IS REPEATED EVERY 2 WEEKS)
     Route: 042
  8. IRINOTECAN [Suspect]
     Active Substance: IRINOTECAN
     Dosage: 150 MG/M2(OVER 90 MIN,CYCLE IS REPEATED EVERY 2 WEEKS) INFUSION
     Route: 042
  9. LEUCOVORIN [FOLINIC ACID] [Concomitant]
     Active Substance: LEUCOVORIN
     Indication: PANCREATIC CARCINOMA METASTATIC
  10. OXALIPLATIN. [Suspect]
     Active Substance: OXALIPLATIN
     Indication: PANCREATIC CARCINOMA METASTATIC
  11. LEUCOVORIN [FOLINIC ACID] [Concomitant]
     Active Substance: LEUCOVORIN
     Indication: ADENOCARCINOMA PANCREAS
     Dosage: 400 MG/M2(CYCLE IS REPEATED EVERY 2 WEEKS)
     Route: 042
  12. ATROPINE. [Concomitant]
     Active Substance: ATROPINE

REACTIONS (9)
  - Paraesthesia [Recovered/Resolved]
  - Neuropathy peripheral [Recovered/Resolved]
  - Dysphagia [Recovered/Resolved]
  - Cholinergic syndrome [Recovered/Resolved]
  - Speech disorder [Recovered/Resolved]
  - Visual impairment [Recovered/Resolved]
  - Neurotoxicity [Unknown]
  - Disease recurrence [Recovering/Resolving]
  - Dysarthria [Recovered/Resolved]
